FAERS Safety Report 11917888 (Version 2)
Quarter: 2016Q1

REPORT INFORMATION
  Report Type: Report from Study
  Country: CA (occurrence: CA)
  Receive Date: 20160114
  Receipt Date: 20160122
  Transmission Date: 20160526
  Serious: Yes (Death)
  Sender: FDA-Public Use
  Company Number: PHHY2015CA035784

PATIENT
  Age: 87 Year
  Sex: Female

DRUGS (3)
  1. METHOTREXATE [Concomitant]
     Active Substance: METHOTREXATE
     Indication: PRODUCT USED FOR UNKNOWN INDICATION
     Dosage: 7.5 MG (WEEKLY)
     Route: 065
  2. ACLASTA [Suspect]
     Active Substance: ZOLEDRONIC ACID
     Dosage: 5 MG, UNK
     Route: 042
     Dates: start: 20150407, end: 20150407
  3. ACLASTA [Suspect]
     Active Substance: ZOLEDRONIC ACID
     Indication: OSTEOPOROSIS
     Dosage: 5 MG, UNK
     Route: 042
     Dates: start: 20111227

REACTIONS (9)
  - Cardiac failure congestive [Fatal]
  - Mean cell volume decreased [Unknown]
  - Haematocrit decreased [Unknown]
  - Pyrexia [Recovering/Resolving]
  - Glomerular filtration rate decreased [Unknown]
  - Mean cell haemoglobin decreased [Unknown]
  - Haemoglobin decreased [Unknown]
  - Red cell distribution width increased [Unknown]
  - Diarrhoea [Recovering/Resolving]

NARRATIVE: CASE EVENT DATE: 20150224
